FAERS Safety Report 7990762-9 (Version None)
Quarter: 2011Q4

REPORT INFORMATION
  Report Type: 
  Country: None (occurrence: None)
  Receive Date: 20111219
  Receipt Date: 20111219
  Transmission Date: 20120403
  Serious: Yes (Other)
  Sender: FDA-Public Use
  Company Number: None

PATIENT
  Age: 56 Year
  Sex: Female
  Weight: 54.431 kg

DRUGS (2)
  1. PAROXETINE HCL [Suspect]
     Indication: ANXIETY
     Dosage: 1 TABLET
     Route: 048
     Dates: start: 20111217, end: 20111217
  2. PAROXETINE HCL [Suspect]
     Indication: DEATH OF RELATIVE
     Dosage: 1 TABLET
     Route: 048
     Dates: start: 20111217, end: 20111217

REACTIONS (5)
  - ABDOMINAL PAIN UPPER [None]
  - NAUSEA [None]
  - DIARRHOEA [None]
  - VOMITING [None]
  - MALAISE [None]
